FAERS Safety Report 22320499 (Version 1)
Quarter: 2023Q2

REPORT INFORMATION
  Report Type: Spontaneous
  Country: US (occurrence: US)
  Receive Date: 20230515
  Receipt Date: 20230515
  Transmission Date: 20230721
  Serious: No
  Sender: FDA-Public Use
  Company Number: US-GUERBET / LLC-US-20230013

PATIENT
  Age: 79 Year
  Sex: Female

DRUGS (2)
  1. OPTIRAY [Suspect]
     Active Substance: IOVERSOL
     Indication: Computerised tomogram thorax
     Dates: start: 20200724, end: 20200724
  2. OPTIRAY [Suspect]
     Active Substance: IOVERSOL
     Indication: Computerised tomogram abdomen

REACTIONS (2)
  - Urticaria [Recovered/Resolved]
  - Pruritus [Recovered/Resolved]

NARRATIVE: CASE EVENT DATE: 20200724
